FAERS Safety Report 9994676 (Version 1)
Quarter: 2014Q1

REPORT INFORMATION
  Report Type: Spontaneous
  Country: US (occurrence: None)
  Receive Date: 20140307
  Receipt Date: 20140307
  Transmission Date: 20141002
  Serious: Yes (Hospitalization)
  Sender: FDA-Public Use
  Company Number: None

PATIENT
  Age: 60 Year
  Sex: Male

DRUGS (1)
  1. INCIVEK 375 MG [Suspect]
     Indication: HEPATITIS C
     Dosage: 2 TABLETS 3 TIMES A DAY BY MOUTH
     Route: 048
     Dates: start: 20140216, end: 20140219

REACTIONS (3)
  - Pancreatitis [None]
  - Colitis [None]
  - Diverticulitis [None]
